FAERS Safety Report 24540356 (Version 1)
Quarter: 2024Q4

REPORT INFORMATION
  Report Type: Spontaneous
  Country: BR (occurrence: BR)
  Receive Date: 20241023
  Receipt Date: 20241023
  Transmission Date: 20250114
  Serious: Yes (Other)
  Sender: SANDOZ
  Company Number: BR-002147023-PHHY2019BR109612

PATIENT
  Age: 59 Year
  Sex: Female
  Weight: 68 kg

DRUGS (12)
  1. ANAFRANIL [Suspect]
     Active Substance: CLOMIPRAMINE HYDROCHLORIDE
     Indication: Anxiety disorder
     Dosage: 25 MG, UNK
     Route: 065
     Dates: start: 1995
  2. ANAFRANIL [Suspect]
     Active Substance: CLOMIPRAMINE HYDROCHLORIDE
     Indication: Depression
     Dosage: 50 MG, UNK
     Route: 065
     Dates: start: 1995
  3. ANAFRANIL [Suspect]
     Active Substance: CLOMIPRAMINE HYDROCHLORIDE
     Indication: Obsessive-compulsive disorder
     Dosage: 75 MG, UNK
     Route: 065
  4. CLOXAZOLAM [Suspect]
     Active Substance: CLOXAZOLAM
     Indication: Anxiety disorder
     Dosage: 1 DF, QD
     Route: 065
  5. CLOXAZOLAM [Suspect]
     Active Substance: CLOXAZOLAM
     Indication: Depression
  6. CLOXAZOLAM [Suspect]
     Active Substance: CLOXAZOLAM
     Indication: Obsessive-compulsive disorder
  7. AMLODIPINE\VALSARTAN [Concomitant]
     Active Substance: AMLODIPINE\VALSARTAN
     Indication: Hypertension
     Dosage: 1 DF, QD (IN THE MORNING)
     Route: 048
  8. EXFORGE HCT [Concomitant]
     Active Substance: AMLODIPINE BESYLATE\HYDROCHLOROTHIAZIDE\VALSARTAN
     Indication: Hypertension
     Dosage: 1 DF, QD (IN THE MORNING)
     Route: 048
  9. DAPAGLIFLOZIN [Concomitant]
     Active Substance: DAPAGLIFLOZIN
     Indication: Type 2 diabetes mellitus
     Dosage: 2 DF, QD
     Route: 048
  10. METFORMIN [Concomitant]
     Active Substance: METFORMIN HYDROCHLORIDE
     Indication: Type 2 diabetes mellitus
     Dosage: 2 DF, QD
     Route: 048
  11. RIVOTRIL [Concomitant]
     Active Substance: CLONAZEPAM
     Indication: Obsessive-compulsive disorder
     Dosage: 1 DF, QD (IN THE MORNING)
     Route: 048
     Dates: start: 201805
  12. LINAGLIPTIN [Concomitant]
     Active Substance: LINAGLIPTIN
     Indication: Type 2 diabetes mellitus
     Dosage: 5 MG, QD (1 TABLET IN THE MORNING)
     Route: 048

REACTIONS (10)
  - Drug withdrawal syndrome [Unknown]
  - Type 2 diabetes mellitus [Not Recovered/Not Resolved]
  - Collateral circulation [Unknown]
  - Hypertension [Recovered/Resolved]
  - Stress [Unknown]
  - Panic reaction [Recovering/Resolving]
  - Anxiety [Unknown]
  - Agitation [Recovering/Resolving]
  - Nervousness [Recovering/Resolving]
  - Weight increased [Not Recovered/Not Resolved]

NARRATIVE: CASE EVENT DATE: 20180501
